FAERS Safety Report 7942211 (Version 20)
Quarter: 2013Q4

REPORT INFORMATION
  Report Type: Spontaneous
  Country: US (occurrence: US)
  Receive Date: 20110512
  Receipt Date: 20131029
  Transmission Date: 20140711
  Serious: Yes (Other)
  Sender: FDA-Public Use
  Company Number: PHEH2011US00482

PATIENT
  Sex: Female

DRUGS (7)
  1. AREDIA [Suspect]
     Indication: PLASMA CELL MYELOMA
     Route: 042
  2. AREDIA [Suspect]
     Dosage: 90 MG,
     Route: 042
     Dates: start: 2012
  3. ZOMETA [Suspect]
     Indication: PLASMA CELL MYELOMA
     Route: 042
  4. MELPHALAN [Concomitant]
  5. PREDNISONE [Concomitant]
  6. VELCADE [Concomitant]
  7. SIMVASTATIN [Concomitant]
     Dosage: 40 MG, QD

REACTIONS (165)
  - Osteonecrosis of jaw [Unknown]
  - Pain [Unknown]
  - Infection [Unknown]
  - Deformity [Unknown]
  - Anxiety [Unknown]
  - Physical disability [Unknown]
  - Injury [Unknown]
  - Tooth abscess [Unknown]
  - Excessive granulation tissue [Unknown]
  - Anaemia [Unknown]
  - Cardiac murmur [Unknown]
  - Hypertension [Unknown]
  - Coronary artery disease [Unknown]
  - Cardiac disorder [Unknown]
  - Diabetes mellitus [Unknown]
  - Arteriosclerosis coronary artery [Unknown]
  - Hypercholesterolaemia [Unknown]
  - Cataract [Unknown]
  - Raynaud^s phenomenon [Unknown]
  - Plasma protein metabolism disorder [Unknown]
  - Exposed bone in jaw [Unknown]
  - Cellulitis [Unknown]
  - Subcutaneous abscess [Unknown]
  - Dental caries [Unknown]
  - Breast pain [Unknown]
  - Plasma cell myeloma [Unknown]
  - Atelectasis [Unknown]
  - Joint swelling [Unknown]
  - Blood disorder [Unknown]
  - Cerebrovascular accident [Unknown]
  - Soft tissue disorder [Unknown]
  - Tendon calcification [Unknown]
  - Pancytopenia [Unknown]
  - Amnesia [Unknown]
  - Diverticulum [Unknown]
  - Viral infection [Unknown]
  - Breast mass [Unknown]
  - Thyroid disorder [Unknown]
  - Hepatitis [Unknown]
  - Pollakiuria [Unknown]
  - Bence Jones proteinuria [Unknown]
  - Swelling face [Unknown]
  - Dystonia [Unknown]
  - Conjunctival haemorrhage [Unknown]
  - Actinic keratosis [Unknown]
  - Upper respiratory tract infection [Unknown]
  - Deafness [Unknown]
  - Rhinitis [Unknown]
  - Plasmacytoma [Unknown]
  - Fibromyalgia [Unknown]
  - Pathological fracture [Unknown]
  - Colon adenoma [Unknown]
  - Vascular calcification [Unknown]
  - Osteolysis [Unknown]
  - Osteopenia [Unknown]
  - Lumbar radiculopathy [Unknown]
  - Intervertebral disc protrusion [Unknown]
  - Lymphoedema [Unknown]
  - Road traffic accident [Unknown]
  - Bone cyst [Unknown]
  - Bone lesion [Unknown]
  - Breast calcifications [Unknown]
  - Cyst [Unknown]
  - Cerumen impaction [Unknown]
  - Anosmia [Unknown]
  - Ageusia [Unknown]
  - Nodal osteoarthritis [Unknown]
  - Synovial cyst [Unknown]
  - Tenosynovitis [Unknown]
  - Bone disorder [Unknown]
  - Eczema [Unknown]
  - Ischaemia [Unknown]
  - Angina unstable [Unknown]
  - Pulmonary mass [Unknown]
  - Bone marrow oedema [Unknown]
  - Meniscus injury [Unknown]
  - Tooth fracture [Unknown]
  - Spinal column stenosis [Unknown]
  - Nerve injury [Unknown]
  - Varicose vein [Unknown]
  - Deep vein thrombosis [Unknown]
  - Spinal osteoarthritis [Unknown]
  - Embolism [Unknown]
  - Arthritis [Unknown]
  - Haemorrhoids [Unknown]
  - Vision blurred [Unknown]
  - Osteoporosis [Unknown]
  - Arthropathy [Unknown]
  - Fibrocystic breast disease [Unknown]
  - Cataract nuclear [Unknown]
  - Calcification of muscle [Unknown]
  - Muscle necrosis [Unknown]
  - Hyperlipidaemia [Unknown]
  - Large intestine benign neoplasm [Unknown]
  - Benign anorectal neoplasm [Unknown]
  - Costochondritis [Unknown]
  - Folliculitis [Unknown]
  - Hypogammaglobulinaemia [Unknown]
  - Lymphoma [Unknown]
  - Hypertrophy [Unknown]
  - Uterine leiomyoma [Unknown]
  - Primary sequestrum [Unknown]
  - Atrophic vulvovaginitis [Unknown]
  - Paronychia [Unknown]
  - Bone fragmentation [Unknown]
  - Vertebral osteophyte [Unknown]
  - Intervertebral disc space narrowing [Unknown]
  - Haemangioma [Recovering/Resolving]
  - Bone neoplasm [Unknown]
  - Basal cell carcinoma [Unknown]
  - Large intestine polyp [Unknown]
  - Osteoarthritis [Unknown]
  - Bone swelling [Unknown]
  - Hyperglycaemia [Unknown]
  - Femur fracture [Unknown]
  - Wrist fracture [Unknown]
  - Pain in jaw [Unknown]
  - Joint contracture [Unknown]
  - Telangiectasia [Unknown]
  - Neoplasm [Unknown]
  - Tooth loss [Unknown]
  - Periodontal disease [Unknown]
  - Oral mucosal erythema [Unknown]
  - Fall [Unknown]
  - Vertebral foraminal stenosis [Unknown]
  - Myofascitis [Unknown]
  - Melanocytic naevus [Unknown]
  - Seborrhoeic keratosis [Unknown]
  - Milia [Unknown]
  - Campbell de Morgan spots [Unknown]
  - Joint effusion [Unknown]
  - Carotid artery restenosis [Unknown]
  - Cough [Unknown]
  - Respiratory tract congestion [Unknown]
  - Carotid bruit [Unknown]
  - Sensitivity of teeth [Unknown]
  - Depression [Unknown]
  - Arthralgia [Unknown]
  - Musculoskeletal pain [Unknown]
  - Oedema peripheral [Unknown]
  - Dyspnoea [Unknown]
  - Hypokalaemia [Unknown]
  - Gait disturbance [Unknown]
  - Diplopia [Unknown]
  - Diarrhoea [Unknown]
  - Weight decreased [Unknown]
  - Back pain [Unknown]
  - Dry eye [Unknown]
  - Neck pain [Unknown]
  - Chest pain [Unknown]
  - Rash [Unknown]
  - Musculoskeletal chest pain [Unknown]
  - Pain in extremity [Unknown]
  - Bursitis [Unknown]
  - Sunburn [Unknown]
  - Paraesthesia [Unknown]
  - Hypoaesthesia [Unknown]
  - Lacrimation decreased [Unknown]
  - Hypermetropia [Unknown]
  - Presbyopia [Unknown]
  - Conjunctivitis [Unknown]
  - Change of bowel habit [Unknown]
  - Hypokinesia [Unknown]
  - Muscular weakness [Unknown]
  - Tenderness [Unknown]
